FAERS Safety Report 18902571 (Version 3)
Quarter: 2021Q1

REPORT INFORMATION
  Report Type: Spontaneous
  Country: GB (occurrence: GB)
  Receive Date: 20210217
  Receipt Date: 20210309
  Transmission Date: 20210420
  Serious: Yes (Hospitalization, Other)
  Sender: FDA-Public Use
  Company Number: GB-CIPLA LTD.-2021GB01011

PATIENT

DRUGS (4)
  1. CLOZARIL [Suspect]
     Active Substance: CLOZAPINE
     Indication: SCHIZOPHRENIA
     Dosage: UNK, QD
     Route: 048
     Dates: start: 20090927
  2. GEMCITABINE. [Suspect]
     Active Substance: GEMCITABINE
     Indication: BLADDER CANCER
     Dosage: UNK, PER 1 CYCLE
     Route: 065
     Dates: start: 20201229
  3. CISPLATIN. [Suspect]
     Active Substance: CISPLATIN
     Indication: BLADDER CANCER
     Dosage: UNK, CYCLICAL
     Route: 065
     Dates: start: 20201229
  4. CLOZARIL [Suspect]
     Active Substance: CLOZAPINE
     Dosage: 75 MG AT AM AND 100 MG AT PM, BID
     Route: 048

REACTIONS (5)
  - Eosinophilia [Not Recovered/Not Resolved]
  - Contraindicated product administered [Unknown]
  - Hospitalisation [Unknown]
  - Bladder cancer [Unknown]
  - Platelet count increased [Unknown]

NARRATIVE: CASE EVENT DATE: 20200811
